FAERS Safety Report 7243019-8 (Version None)
Quarter: 2011Q1

REPORT INFORMATION
  Report Type: 
  Country: None (occurrence: None)
  Receive Date: 20110125
  Receipt Date: 20110112
  Transmission Date: 20110831
  Serious: Yes (Hospitalization)
  Sender: FDA-Public Use
  Company Number: ZA-ELI_LILLY_AND_COMPANY-ZA201101003855

PATIENT
  Age: 50 Year
  Sex: Female

DRUGS (3)
  1. ZYPREXA [Suspect]
     Indication: BIPOLAR DISORDER
     Dosage: 20 MG, UNK
     Route: 048
     Dates: start: 20100101, end: 20110110
  2. ZYPREXA [Suspect]
     Dosage: 10 MG, UNK
     Route: 048
     Dates: start: 20110110
  3. FLUOXETINE [Suspect]
     Dosage: 40 MG, UNK

REACTIONS (4)
  - OEDEMA [None]
  - URINARY INCONTINENCE [None]
  - HOSPITALISATION [None]
  - WEIGHT INCREASED [None]
